FAERS Safety Report 5573075-4 (Version None)
Quarter: 2007Q4

REPORT INFORMATION
  Report Type: 
  Country: None (occurrence: None)
  Receive Date: 20071224
  Receipt Date: 20071211
  Transmission Date: 20080405
  Serious: Yes (Death)
  Sender: FDA-Public Use
  Company Number: TW-ROCHE-532227

PATIENT
  Age: 40 Year
  Sex: Male
  Weight: 50 kg

DRUGS (2)
  1. PEGASYS [Suspect]
     Route: 058
     Dates: start: 20050101, end: 20060101
  2. ROBATROL [Suspect]
     Dosage: DOSAGE: 2#
     Route: 048
     Dates: start: 20050101, end: 20060101

REACTIONS (1)
  - HEPATIC NEOPLASM MALIGNANT [None]
